FAERS Safety Report 17114524 (Version 2)
Quarter: 2020Q4

REPORT INFORMATION
  Report Type: Spontaneous
  Country: FR (occurrence: FR)
  Receive Date: 20191205
  Receipt Date: 20201016
  Transmission Date: 20210113
  Serious: Yes (Life-Threatening, Hospitalization)
  Sender: FDA-Public Use
  Company Number: FR-TEVA-2019-FR-1146764

PATIENT
  Age: 101 Year
  Sex: Male
  Weight: 74 kg

DRUGS (5)
  1. LASILIX SPECIAL 250 MG/25 ML, SOLUTION INJECTABLE EN AMPOULE [Suspect]
     Active Substance: FUROSEMIDE
     Indication: WRONG PATIENT RECEIVED PRODUCT
     Route: 042
     Dates: start: 20191028, end: 20191028
  2. HEMIGOXINE NATIVELLE 0,125 MG, COMPRIME [Suspect]
     Active Substance: DIGOXIN
     Indication: WRONG PATIENT RECEIVED PRODUCT
     Dosage: 0.13MG IN TOTAL
     Route: 048
     Dates: start: 20191028, end: 20191028
  3. TOPALGIC [TRAMADOL HYDROCHLORIDE] [Suspect]
     Active Substance: TRAMADOL HYDROCHLORIDE
     Indication: WRONG PATIENT RECEIVED PRODUCT
     Dosage: 100MG IN TOTAL
     Route: 048
     Dates: start: 20191028, end: 20191028
  4. LEVOTHYROX 100 MICROGRAMMES, COMPRIME SECABLE [Suspect]
     Active Substance: LEVOTHYROXINE
     Indication: WRONG PATIENT RECEIVED PRODUCT
     Dosage: SCORED TABLET, 100 MCG
     Route: 048
     Dates: start: 20191028, end: 20191028
  5. BISOPROLOL (HEMIFUMARATE DE) [Suspect]
     Active Substance: BISOPROLOL FUMARATE
     Indication: WRONG PATIENT RECEIVED PRODUCT
     Dosage: 5MG IN TOTAL
     Route: 048
     Dates: start: 20191028, end: 20191028

REACTIONS (6)
  - Acute kidney injury [Recovered/Resolved]
  - Wrong patient received product [Recovered/Resolved]
  - Vomiting [Recovered/Resolved]
  - Bradycardia [Recovered/Resolved]
  - Hypotension [Recovered/Resolved]
  - Pneumonia aspiration [Recovered/Resolved]

NARRATIVE: CASE EVENT DATE: 20191028
